FAERS Safety Report 5167641-8 (Version None)
Quarter: 2006Q4

REPORT INFORMATION
  Report Type: 
  Country: None (occurrence: None)
  Receive Date: 20061204
  Receipt Date: 20061204
  Transmission Date: 20070319
  Serious: No
  Sender: FDA-Public Use
  Company Number: None

PATIENT
  Sex: Female

DRUGS (1)
  1. TRI-SPRINTEC [Suspect]
     Indication: CONTRACEPTION
     Dosage: ONE QD   3WKS  ORAL
     Route: 048

REACTIONS (1)
  - METRORRHAGIA [None]
